FAERS Safety Report 21280845 (Version 6)
Quarter: 2023Q4

REPORT INFORMATION
  Report Type: Spontaneous
  Country: US (occurrence: US)
  Receive Date: 20220901
  Receipt Date: 20231120
  Transmission Date: 20240110
  Serious: No
  Sender: FDA-Public Use
  Company Number: US-PFIZER INC-PV202200054865

PATIENT
  Age: 56 Year
  Sex: Male

DRUGS (2)
  1. INLYTA [Suspect]
     Active Substance: AXITINIB
     Dosage: UNK, CYCLIC (2 TABLETS BY MOUTH ONCE DAILY FOR 2 DAYS, THEN 3 TABLETS FOR 1 DAY, THEN REPEAT CYCLE)
     Route: 048
  2. INLYTA [Suspect]
     Active Substance: AXITINIB
     Dosage: 2 TABLETS INSTEAD OF 3

REACTIONS (3)
  - Diarrhoea [Not Recovered/Not Resolved]
  - Fatigue [Unknown]
  - Off label use [Unknown]
